FAERS Safety Report 16673072 (Version 3)
Quarter: 2019Q3

REPORT INFORMATION
  Report Type: Report from Study
  Country: None (occurrence: JP)
  Receive Date: 20190806
  Receipt Date: 20190823
  Transmission Date: 20191004
  Serious: Yes (Hospitalization)
  Sender: FDA-Public Use
  Company Number: JP-ABBVIE-18K-087-2330099-00

PATIENT
  Age: 64 Year
  Sex: Female

DRUGS (3)
  1. DUODOPA [Suspect]
     Active Substance: CARBIDOPA\LEVODOPA
     Dosage: MD: 8.0 ML, CD: 1.8 ML/HOUR X 16 HOURS
     Route: 050
     Dates: start: 20190405
  2. CARBIDOPA HYDRATE AND LEVODOPA [Concomitant]
     Indication: PARKINSON^S DISEASE
     Dates: start: 20190227, end: 20190404
  3. DUODOPA [Suspect]
     Active Substance: CARBIDOPA\LEVODOPA
     Indication: PARKINSON^S DISEASE
     Route: 050
     Dates: start: 20180224, end: 20190227

REACTIONS (6)
  - Device occlusion [Unknown]
  - Stoma site infection [Unknown]
  - Device occlusion [Recovered/Resolved]
  - Posture abnormal [Recovered/Resolved]
  - Hospitalisation [Recovered/Resolved]
  - Abdominal distension [Unknown]

NARRATIVE: CASE EVENT DATE: 20190227
